FAERS Safety Report 5835073-2 (Version None)
Quarter: 2008Q3

REPORT INFORMATION
  Report Type: 
  Country: None (occurrence: None)
  Receive Date: 20080804
  Receipt Date: 20080724
  Transmission Date: 20090109
  Serious: Yes (Death)
  Sender: FDA-Public Use
  Company Number: GXKR2007GB10304

PATIENT
  Age: 78 Year
  Sex: Female

DRUGS (11)
  1. SIMVASTATIN [Suspect]
     Indication: CARDIOVASCULAR EVENT PROPHYLAXIS
     Dosage: 10 MG, ORAL
     Route: 048
     Dates: end: 20070912
  2. AMITRIPTLINE HYDROCHLORIDE TAB [Concomitant]
  3. ACETYLSALICYLIC ACID SRT [Concomitant]
  4. BENDROFLUAZIDE (BENDROFLUMETHIAZIDE) [Concomitant]
  5. GLIMEPIRIDE [Concomitant]
  6. METFORMIN HCL [Concomitant]
  7. LEVOTHYROXINE SODIUM [Concomitant]
  8. AEROBEC (BECLOMETASONE DIPROPIONATE) [Concomitant]
  9. AIROMIR (SALBUTAMOL SULFATE) [Concomitant]
  10. LEVOTHYROXINE SODIUM [Concomitant]
  11. SIMVASTATIN [Concomitant]

REACTIONS (4)
  - BRONCHOPNEUMONIA [None]
  - CARDIAC FAILURE [None]
  - HAEMOPTYSIS [None]
  - LEFT VENTRICULAR FAILURE [None]
